FAERS Safety Report 15286367 (Version 1)
Quarter: 2018Q3

REPORT INFORMATION
  Report Type: Report from Study
  Country: US (occurrence: US)
  Receive Date: 20180816
  Receipt Date: 20180816
  Transmission Date: 20181010
  Serious: Yes (Death)
  Sender: FDA-Public Use
  Company Number: US-BAYER-2018-150093

PATIENT
  Age: 74 Year
  Sex: Male

DRUGS (1)
  1. STIVARGA [Suspect]
     Active Substance: REGORAFENIB
     Dosage: 80 MG, DAILY (3X28 TABS)
     Route: 048
     Dates: start: 20180716, end: 20180728

REACTIONS (2)
  - Generalised tonic-clonic seizure [Fatal]
  - Off label use [None]

NARRATIVE: CASE EVENT DATE: 20180727
